FAERS Safety Report 21487321 (Version 1)
Quarter: 2022Q4

REPORT INFORMATION
  Report Type: Spontaneous
  Country: US (occurrence: US)
  Receive Date: 20221020
  Receipt Date: 20221020
  Transmission Date: 20230112
  Serious: Yes (Other)
  Sender: FDA-Public Use
  Company Number: US-MYLANLABS-2022M1115906

PATIENT
  Sex: Female
  Weight: 28.2 kg

DRUGS (1)
  1. ZOLOFT [Suspect]
     Active Substance: SERTRALINE HYDROCHLORIDE
     Indication: Conversion disorder
     Dosage: 12.5 MILLIGRAM, QD
     Route: 048
     Dates: start: 20220420

REACTIONS (1)
  - Paediatric acute-onset neuropsychiatric syndrome [Unknown]
